FAERS Safety Report 7602909-4 (Version None)
Quarter: 2011Q3

REPORT INFORMATION
  Report Type: 
  Country: None (occurrence: None)
  Receive Date: 20110701
  Receipt Date: 20110623
  Transmission Date: 20111222
  Serious: Yes (Other)
  Sender: FDA-Public Use
  Company Number: 1000021525

PATIENT
  Age: 67 Year
  Sex: Male
  Weight: 77 kg

DRUGS (10)
  1. APROVEL (IRBESARTAN) (150 MILLIGRAM, TABLETS) (IRBESARTAN) [Concomitant]
  2. THEOLAIR RETARD (THEOPHYLLINE) (250 MILLIGRAM) (THEOPHYLLINE) [Concomitant]
  3. TILDIEM (DILTIAZEM HYDROCHLORIDE) (200 MILLIGRAM, CAPSULES) (DILTIAZEM [Concomitant]
  4. SPIRIVA (TIOTROPIUM) (150 MILLIGRAM, TABLETS) (IRBESARTAN) [Concomitant]
  5. IPRAMOL (IPRATROPIUM, SALBUTAMOL) (IPRATROPIUM, SALBUTAMOL) [Concomitant]
  6. NEXIUM (ESOMEPRAZOLE) (TABLETS) (ESOMEPRAZOLE) [Concomitant]
  7. FOSTER (BECLOMETASONE DIPROPIONATE, FORMOTEROL) (BECLOMETASONE DIPROPI [Concomitant]
  8. ZITHROMAX [Concomitant]
  9. ROFLUMILAST (ROFLUMILAST) (500 MICROGRAM, TABLETS) [Suspect]
     Indication: CHRONIC OBSTRUCTIVE PULMONARY DISEASE
     Dosage: 500 MCG (500 MCG,1 IN 1 D),ORAL
     Route: 048
     Dates: start: 20110302, end: 20110418
  10. ROFLUMILAST (ROFLUMILAST) (500 MICROGRAM, TABLETS) [Suspect]
     Indication: CONDITION AGGRAVATED
     Dosage: 500 MCG (500 MCG,1 IN 1 D),ORAL
     Route: 048
     Dates: start: 20110302, end: 20110418

REACTIONS (3)
  - POLLAKIURIA [None]
  - INSOMNIA [None]
  - PAIN IN EXTREMITY [None]
